FAERS Safety Report 8268842-2 (Version None)
Quarter: 2012Q2

REPORT INFORMATION
  Report Type: 
  Country: None (occurrence: None)
  Receive Date: 20120409
  Receipt Date: 20120409
  Transmission Date: 20120825
  Serious: Yes (Other)
  Sender: FDA-Public Use
  Company Number: None

PATIENT
  Age: 57 Year
  Sex: Female
  Weight: 74.389 kg

DRUGS (1)
  1. CYMBALTA [Suspect]
     Indication: ANXIETY
     Dosage: 60.0 MG
     Route: 048
     Dates: start: 20091001, end: 20120117

REACTIONS (3)
  - IMPAIRED WORK ABILITY [None]
  - AGITATED DEPRESSION [None]
  - HYPOMANIA [None]
